FAERS Safety Report 23631191 (Version 2)
Quarter: 2024Q1

REPORT INFORMATION
  Report Type: Spontaneous
  Country: IT (occurrence: IT)
  Receive Date: 20240314
  Receipt Date: 20240326
  Transmission Date: 20240409
  Serious: Yes (Life-Threatening)
  Sender: FDA-Public Use
  Company Number: IT-SUN PHARMACEUTICAL INDUSTRIES LTD-2024RR-436300

PATIENT
  Age: 86 Year
  Sex: Female
  Weight: 60 kg

DRUGS (4)
  1. LORAZEPAM [Interacting]
     Active Substance: LORAZEPAM
     Indication: Psychomotor hyperactivity
     Dosage: 2.5 MILLIGRAM, QD
     Route: 048
     Dates: start: 202309, end: 202309
  2. TRAZODONE [Interacting]
     Active Substance: TRAZODONE HYDROCHLORIDE
     Indication: Psychomotor hyperactivity
     Dosage: 20 GTT DROPS, TID
     Route: 048
     Dates: start: 202309, end: 202309
  3. ACETAMINOPHEN\OXYCODONE HYDROCHLORIDE [Interacting]
     Active Substance: ACETAMINOPHEN\OXYCODONE HYDROCHLORIDE
     Indication: Pain
     Dosage: DEPALGOS 5MG + 325 MG CP X2 TIMES PER DAY
     Route: 048
     Dates: start: 202309, end: 202309
  4. BROTIZOLAM [Interacting]
     Active Substance: BROTIZOLAM
     Indication: Psychomotor hyperactivity
     Dosage: 0.25 MILLIGRAM, QD
     Route: 048
     Dates: start: 202309, end: 202309

REACTIONS (2)
  - Respiratory failure [Recovering/Resolving]
  - Depressed level of consciousness [Recovering/Resolving]

NARRATIVE: CASE EVENT DATE: 20230922
